FAERS Safety Report 4332164-2 (Version None)
Quarter: 2004Q1

REPORT INFORMATION
  Report Type: 
  Country: None (occurrence: None)
  Receive Date: 20040329
  Receipt Date: 20040315
  Transmission Date: 20041129
  Serious: Yes (Other)
  Sender: FDA-Public Use
  Company Number: 2004009215

PATIENT
  Age: 22 Year
  Sex: Female
  Weight: 64 kg

DRUGS (8)
  1. SERTRALINE (SERTRALINE) [Suspect]
     Indication: DEPRESSION
     Dosage: 200 MG DAILY ORAL
     Route: 048
     Dates: start: 20030401
  2. PEGINTERFERON ALFA-2B (PEGINTERFERON ALFA-2B) [Suspect]
     Indication: HEPATITIS C
     Dosage: WEEKLY, SUBCUTANEOUS
     Route: 058
     Dates: start: 20031128
  3. MIRTAZAPINE [Suspect]
     Indication: DEPRESSION
     Dosage: 30 MG DAILY ORAL
     Route: 048
     Dates: start: 20040117, end: 20040203
  4. RIBAVIRIN [Suspect]
     Indication: HEPATITIS C
     Dosage: 1000 MG DAILY ORAL
     Route: 048
     Dates: start: 20031128
  5. RIBAVIRIN [Suspect]
     Indication: HEPATITIS C
     Dosage: 1000 MG DAILY ORAL
     Route: 048
     Dates: start: 20031128
  6. FENOTEROL HYDROBROMIDE [Concomitant]
  7. SYMBICORT TURBUHALER ^DRACO^ (FORMOTEROL FUMARATE, BUDESONIDE) [Concomitant]
  8. FLUTICASONE PROPIONATE [Concomitant]

REACTIONS (1)
  - GRAND MAL CONVULSION [None]
